FAERS Safety Report 13085656 (Version 1)
Quarter: 2017Q1

REPORT INFORMATION
  Report Type: Spontaneous
  Country: US (occurrence: US)
  Receive Date: 20170103
  Receipt Date: 20170103
  Transmission Date: 20170428
  Serious: No
  Sender: FDA-Public Use
  Company Number: None

PATIENT
  Age: 44 Year
  Sex: Female
  Weight: 74.25 kg

DRUGS (7)
  1. AVEENO ACTIVE NATURALS POSITIVELY RADIANT NOS [Suspect]
     Active Substance: AVOBENZONE\HOMOSALATE\OCTISALATE\OCTOCRYLENE\OXYBENZONE
     Indication: DRY SKIN PROPHYLAXIS
     Route: 061
     Dates: start: 20161231, end: 20170102
  2. NORTRIPTYLINE [Concomitant]
     Active Substance: NORTRIPTYLINE
  3. NAPROXEN. [Concomitant]
     Active Substance: NAPROXEN
  4. CHEWABLE ASPIRIN [Concomitant]
     Active Substance: ASPIRIN
  5. VASELINE ESSENTAL HEALING LOTION [Suspect]
     Active Substance: COSMETICS
  6. MULTI-VITAMIN GUMMIES [Concomitant]
  7. ALPRAZOLAM. [Concomitant]
     Active Substance: ALPRAZOLAM

REACTIONS (2)
  - Product tampering [None]
  - Product physical consistency issue [None]

NARRATIVE: CASE EVENT DATE: 20170102
